FAERS Safety Report 14195746 (Version 1)
Quarter: 2017Q4

REPORT INFORMATION
  Report Type: Spontaneous
  Country: BR (occurrence: BR)
  Receive Date: 20171116
  Receipt Date: 20171116
  Transmission Date: 20180321
  Serious: Yes (Disabling, Other)
  Sender: FDA-Public Use
  Company Number: BR-MYLANLABS-2017M1071746

PATIENT
  Age: 67 Year
  Sex: Female
  Weight: 51 kg

DRUGS (7)
  1. PROGESTERONE. [Concomitant]
     Active Substance: PROGESTERONE
     Indication: PRODUCT USED FOR UNKNOWN INDICATION
     Dosage: 100 MG, QD
     Dates: start: 2013
  2. DIOVAN [Concomitant]
     Active Substance: VALSARTAN
     Indication: HYPERTENSION
     Dosage: 80 MG, QD
     Dates: start: 2016
  3. OSCAL D [Concomitant]
     Active Substance: CALCIUM CARBONATE\CHOLECALCIFEROL
     Indication: OSTEOPENIA
     Dosage: 1 DF, QD
     Dates: start: 201707
  4. ESTREVA? 0,1 % GEL [Suspect]
     Active Substance: ESTRADIOL
     Indication: HOT FLUSH
  5. ESTREVA? 0,1 % GEL [Suspect]
     Active Substance: ESTRADIOL
     Indication: VULVOVAGINAL DRYNESS
  6. ESTREVA? 0,1 % GEL [Suspect]
     Active Substance: ESTRADIOL
     Indication: OSTEOPENIA
     Dosage: 03 PUMPS 03 TIMES PER WEEK; 2 PUMPS ONCE A DAY AT NIGHT TWICE A WEEK
     Route: 062
     Dates: start: 2009
  7. ACLASTA [Concomitant]
     Active Substance: ZOLEDRONIC ACID
     Indication: OSTEOPENIA
     Dosage: 1 IN 1 YEAR

REACTIONS (2)
  - Cystitis [Not Recovered/Not Resolved]
  - Bedridden [Not Recovered/Not Resolved]
